FAERS Safety Report 5522356-9 (Version None)
Quarter: 2007Q4

REPORT INFORMATION
  Report Type: 
  Country: None (occurrence: None)
  Receive Date: 20071120
  Receipt Date: 20071109
  Transmission Date: 20080405
  Serious: Yes (Hospitalization)
  Sender: FDA-Public Use
  Company Number: BE-ELI_LILLY_AND_COMPANY-BE200710002918

PATIENT
  Sex: Female
  Weight: 84 kg

DRUGS (1)
  1. FORTEO [Suspect]
     Indication: OSTEOPOROSIS
     Dosage: 20 UG, DAILY (1/D)
     Route: 065
     Dates: start: 20061219, end: 20070828

REACTIONS (4)
  - ANOREXIA [None]
  - ASTHENIA [None]
  - HYPERHIDROSIS [None]
  - INFLUENZA LIKE ILLNESS [None]
